FAERS Safety Report 17720284 (Version 1)
Quarter: 2020Q2

REPORT INFORMATION
  Report Type: Spontaneous
  Country: PL (occurrence: PL)
  Receive Date: 20200428
  Receipt Date: 20200428
  Transmission Date: 20200714
  Serious: Yes (Other)
  Sender: FDA-Public Use
  Company Number: PL-GE HEALTHCARE LIFE SCIENCES-2019CSU001661

PATIENT

DRUGS (2)
  1. CLARISCAN [Suspect]
     Active Substance: GADOTERATE MEGLUMINE
     Indication: MAGNETIC RESONANCE IMAGING BREAST
     Dosage: 15 ML, SINGLE
     Route: 042
     Dates: start: 20190312, end: 20190312
  2. CLARISCAN [Suspect]
     Active Substance: GADOTERATE MEGLUMINE
     Indication: PRODUCT USED FOR UNKNOWN INDICATION

REACTIONS (3)
  - Feeling hot [Unknown]
  - Erythema [Unknown]
  - Blister [Unknown]

NARRATIVE: CASE EVENT DATE: 20190312
